FAERS Safety Report 5286681-1 (Version None)
Quarter: 2007Q1

REPORT INFORMATION
  Report Type: 
  Country: None (occurrence: None)
  Receive Date: 20070116
  Receipt Date: 20061027
  Transmission Date: 20070707
  Serious: No
  Sender: FDA-Public Use
  Company Number: 2006SP003858

PATIENT
  Age: 79 Year
  Sex: Male
  Weight: 84.8226 kg

DRUGS (11)
  1. LUNESTA [Suspect]
     Indication: INSOMNIA
     Dosage: SEE IMAGE
     Route: 048
     Dates: start: 20061001, end: 20061001
  2. LUNESTA [Suspect]
     Indication: INSOMNIA
     Dosage: SEE IMAGE
     Route: 048
     Dates: start: 20061001
  3. ASPIRIN [Concomitant]
  4. OMEPRAZOLE [Concomitant]
  5. ZETIA [Concomitant]
  6. METOPROLOL SUCCINATE [Concomitant]
  7. FOSINOPRIL SODIUM [Concomitant]
  8. CELEBREX [Concomitant]
  9. FISH OIL [Concomitant]
  10. SIMVASTATIN [Concomitant]
  11. TYLENOL [Concomitant]

REACTIONS (2)
  - DRUG INEFFECTIVE [None]
  - INSOMNIA [None]
